FAERS Safety Report 9087743 (Version 1)
Quarter: 2013Q1

REPORT INFORMATION
  Report Type: Report from Study
  Country: US (occurrence: US)
  Receive Date: 20130131
  Receipt Date: 20130131
  Transmission Date: 20140127
  Serious: No
  Sender: FDA-Public Use
  Company Number: US-ABBOTT-12P-163-0991047-00

PATIENT
  Age: 26 Year
  Sex: Male

DRUGS (6)
  1. HUMIRA [Suspect]
     Indication: REITER^S SYNDROME
     Dosage: INITIAL DOSE
     Dates: start: 20121002
  2. METHOTREXATE [Concomitant]
     Indication: REITER^S SYNDROME
     Dosage: 8 TABS WEEKLY
     Route: 048
  3. PREDNISONE [Concomitant]
     Indication: REITER^S SYNDROME
     Dosage: 5MG DAILY
     Route: 048
  4. SULFASALAZINE [Concomitant]
     Indication: REITER^S SYNDROME
     Dosage: 2000MG DAILY
     Route: 048
  5. NAPROXEN [Concomitant]
     Indication: REITER^S SYNDROME
     Dosage: 1000MG DAILY
     Route: 048
  6. FOLIC ACID [Concomitant]
     Indication: REITER^S SYNDROME
     Dosage: 2000MG DAILY

REACTIONS (4)
  - Device malfunction [Not Recovered/Not Resolved]
  - Injection site pain [Not Recovered/Not Resolved]
  - Injection site induration [Not Recovered/Not Resolved]
  - Injection site pain [Not Recovered/Not Resolved]
